FAERS Safety Report 24102479 (Version 3)
Quarter: 2024Q3

REPORT INFORMATION
  Report Type: Report from Study
  Country: CN (occurrence: CN)
  Receive Date: 20240717
  Receipt Date: 20240920
  Transmission Date: 20241017
  Serious: Yes (Hospitalization, Disabling)
  Sender: ABBVIE
  Company Number: CN-ABBVIE-5840888

PATIENT
  Age: 2 Year
  Sex: Female
  Weight: 12 kg

DRUGS (5)
  1. HUMIRA [Suspect]
     Active Substance: ADALIMUMAB
     Indication: Juvenile idiopathic arthritis
     Dosage: FORM STRENGTH-20 MG
     Route: 058
     Dates: start: 20230622, end: 20240607
  2. HUMIRA [Suspect]
     Active Substance: ADALIMUMAB
     Dosage: FORM STRENGTH-20 MG?START DATE 2024
     Route: 058
  3. FOLIC ACID [Concomitant]
     Active Substance: FOLIC ACID
     Indication: Juvenile idiopathic arthritis
     Dosage: FORM STRENGTH-5 MG
     Route: 048
     Dates: start: 202304
  4. VITAMIN AD [Concomitant]
     Active Substance: PETROLATUM
     Indication: Mineral supplementation
     Dosage: 1 CAPSULE
     Route: 048
     Dates: start: 202304
  5. METHOTREXATE [Concomitant]
     Active Substance: METHOTREXATE
     Indication: Juvenile idiopathic arthritis
     Dosage: FORM STRENGTH-5 MG
     Route: 048
     Dates: start: 202304

REACTIONS (6)
  - Optic nerve disorder [Recovering/Resolving]
  - Clavicle fracture [Recovered/Resolved]
  - Refraction disorder [Not Recovered/Not Resolved]
  - Nystagmus [Recovered/Resolved]
  - Astrocytoma, low grade [Recovering/Resolving]
  - Astrocytoma, low grade [Recovering/Resolving]

NARRATIVE: CASE EVENT DATE: 20230927
